FAERS Safety Report 15330544 (Version 1)
Quarter: 2018Q4

REPORT INFORMATION
  Report Type: Spontaneous
  Country: US (occurrence: US)
  Receive Date: 20180829
  Receipt Date: 20180829
  Transmission Date: 20190204
  Serious: No
  Sender: FDA-Public Use
  Company Number: US-AKRON, INC.-2054418

PATIENT
  Age: 71 Year
  Sex: Male

DRUGS (1)
  1. LACTULOSE ORAL SOLUTION [Suspect]
     Active Substance: LACTULOSE
     Route: 048

REACTIONS (1)
  - Drug ineffective [Unknown]
